FAERS Safety Report 6380047-9 (Version None)
Quarter: 2009Q3

REPORT INFORMATION
  Report Type: 
  Country: None (occurrence: None)
  Receive Date: 20090928
  Receipt Date: 20090921
  Transmission Date: 20100115
  Serious: Yes (Hospitalization, Disabling, Other)
  Sender: FDA-Public Use
  Company Number: US-MERCK-0902USA01606

PATIENT
  Age: 60 Year
  Sex: Male
  Weight: 85 kg

DRUGS (2)
  1. FOSAMAX [Suspect]
     Indication: OSTEOPENIA
     Route: 048
     Dates: start: 20020201, end: 20070301
  2. FOSAMAX [Suspect]
     Indication: OSTEOPOROSIS
     Route: 048
     Dates: start: 20020201, end: 20070301

REACTIONS (22)
  - ANXIETY [None]
  - BASAL CELL CARCINOMA [None]
  - BENIGN PROSTATIC HYPERPLASIA [None]
  - CARDIOVASCULAR DISORDER [None]
  - CHEST DISCOMFORT [None]
  - CORONARY ARTERY DISEASE [None]
  - DENTAL CARIES [None]
  - ERECTILE DYSFUNCTION [None]
  - GALLBLADDER DISORDER [None]
  - HAEMATURIA [None]
  - HERPES ZOSTER [None]
  - HYPERCHOLESTEROLAEMIA [None]
  - HYPERKERATOSIS [None]
  - HYPERTENSION [None]
  - IMPAIRED HEALING [None]
  - ORAL CANDIDIASIS [None]
  - ORAL FIBROMA [None]
  - ORAL TORUS [None]
  - OSTEOMYELITIS [None]
  - OSTEONECROSIS [None]
  - TESTICULAR DISORDER [None]
  - TRIGGER FINGER [None]
